FAERS Safety Report 5373572-0 (Version None)
Quarter: 2007Q2

REPORT INFORMATION
  Report Type: 
  Country: None (occurrence: None)
  Receive Date: 20070628
  Receipt Date: 20070615
  Transmission Date: 20071010
  Serious: Yes (Disabling)
  Sender: FDA-Public Use
  Company Number: NO-GENENTECH-243119

PATIENT
  Sex: Male
  Weight: 61.995 kg

DRUGS (2)
  1. BLINDED RANIBIZUMAB [Suspect]
     Indication: MACULAR DEGENERATION
     Dosage: 0.5 MG, UNKNOWN
     Route: 031
     Dates: start: 20070504
  2. BLINDED SHAM INJECTION [Suspect]
     Indication: MACULAR DEGENERATION
     Dosage: 0.5 MG, UNKNOWN
     Route: 031
     Dates: start: 20070504

REACTIONS (3)
  - RETINAL VEIN OCCLUSION [None]
  - VASCULAR OCCLUSION [None]
  - VISUAL ACUITY REDUCED [None]
